FAERS Safety Report 4631578-0 (Version None)
Quarter: 2005Q2

REPORT INFORMATION
  Report Type: 
  Country: None (occurrence: None)
  Receive Date: 20050407
  Receipt Date: 20050329
  Transmission Date: 20051028
  Serious: Yes (Life-Threatening)
  Sender: FDA-Public Use
  Company Number: DEU-2005-0001340

PATIENT
  Age: 67 Year
  Sex: Female
  Weight: 150 kg

DRUGS (14)
  1. OXYCODONE HCL [Suspect]
     Indication: BACK PAIN
     Dosage: 20 MG, BID, ORAL; 10 MG, BID, ORAL
     Route: 048
     Dates: start: 20050317, end: 20050318
  2. OXYCODONE HCL [Suspect]
     Indication: BACK PAIN
     Dosage: 20 MG, BID, ORAL; 10 MG, BID, ORAL
     Route: 048
     Dates: start: 20050319, end: 20050320
  3. DEFLAMAT (DICLOFENAC SODIUM) [Concomitant]
  4. CONCOR (BISOPROLOL FUMARATE) [Concomitant]
  5. HYPREN PLUS (RAMIPRIL, HYDROCHLOROTHIAZIDE) [Concomitant]
  6. CARVEDILOL [Concomitant]
  7. THROMB ASS [Concomitant]
  8. GLUCOPHAGE [Concomitant]
  9. ACTRAPID INSULIN NOVO (INSULIN) [Concomitant]
  10. METOCLOPRAMIDE HYDROCHLORIDE [Concomitant]
  11. PANTOPRAZOLE SODIUM [Concomitant]
  12. FUROSEMIDE [Concomitant]
  13. PENBENE (PHENOXYMETHYLPENICILLIN) [Concomitant]
  14. LOVENOX [Concomitant]

REACTIONS (5)
  - BLOOD CREATININE INCREASED [None]
  - DERMATITIS ALLERGIC [None]
  - DYSPNOEA EXACERBATED [None]
  - HAEMODIALYSIS [None]
  - RENAL FAILURE [None]
